FAERS Safety Report 10905721 (Version 1)
Quarter: 2015Q1

REPORT INFORMATION
  Report Type: Report from Study
  Country: US (occurrence: US)
  Receive Date: 20150311
  Receipt Date: 20150311
  Transmission Date: 20150721
  Serious: Yes (Life-Threatening, Hospitalization)
  Sender: FDA-Public Use
  Company Number: US-SANOFI-AVENTIS-2012SA046486

PATIENT
  Age: 76 Year
  Sex: Male
  Weight: 79.4 kg

DRUGS (10)
  1. LANSOPRAZOLE. [Concomitant]
     Active Substance: LANSOPRAZOLE
     Indication: GASTROOESOPHAGEAL REFLUX DISEASE
  2. PRASUGREL [Suspect]
     Active Substance: PRASUGREL
     Indication: ANTIPLATELET THERAPY
     Dates: start: 20100619, end: 20100619
  3. ASPIRIN. [Suspect]
     Active Substance: ASPIRIN
     Indication: ANTIPLATELET THERAPY
     Dates: end: 20100618
  4. PRASUGREL [Suspect]
     Active Substance: PRASUGREL
     Indication: ANTIPLATELET THERAPY
     Dates: start: 20100620, end: 20100709
  5. LISINOPRIL. [Concomitant]
     Active Substance: LISINOPRIL
     Indication: HYPERTENSION
  6. ALL OTHER THERAPEUTIC PRODUCTS [Suspect]
     Active Substance: UNSPECIFIED INGREDIENT
     Indication: CORONARY ARTERY DISEASE
     Dates: start: 20100617, end: 20100617
  7. UNKNOWDRUG [Concomitant]
     Active Substance: UNSPECIFIED INGREDIENT
  8. PLAVIX [Suspect]
     Active Substance: CLOPIDOGREL BISULFATE
     Indication: ANTIPLATELET THERAPY
     Route: 048
     Dates: start: 20100617, end: 20100617
  9. PLAVIX [Suspect]
     Active Substance: CLOPIDOGREL BISULFATE
     Indication: ANTIPLATELET THERAPY
     Route: 048
     Dates: start: 20100618, end: 20100619
  10. METOPROLOL [Concomitant]
     Active Substance: METOPROLOL
     Indication: HYPERTENSION

REACTIONS (4)
  - Arrhythmia [Recovered/Resolved]
  - Thrombosis in device [Recovered/Resolved]
  - Respiratory failure [Recovered/Resolved]
  - Thrombosis in device [Recovered/Resolved]

NARRATIVE: CASE EVENT DATE: 20100619
